FAERS Safety Report 15341904 (Version 1)
Quarter: 2018Q3

REPORT INFORMATION
  Report Type: Spontaneous
  Country: US (occurrence: US)
  Receive Date: 20180828
  Receipt Date: 20180828
  Transmission Date: 20181010
  Serious: Yes (Death)
  Sender: FDA-Public Use
  Company Number: None

PATIENT
  Age: 9 Year
  Sex: Male

DRUGS (22)
  1. POTASSIUM CITRATE. [Concomitant]
     Active Substance: POTASSIUM CITRATE
  2. ONFI [Concomitant]
     Active Substance: CLOBAZAM
  3. AMITRIPTYLINE [Concomitant]
     Active Substance: AMITRIPTYLINE
  4. FLUTICASONE. [Concomitant]
     Active Substance: FLUTICASONE
  5. CEPHALEXIN. [Concomitant]
     Active Substance: CEPHALEXIN
  6. DIAZEPAM. [Concomitant]
     Active Substance: DIAZEPAM
  7. CIPROFLOXACIN. [Concomitant]
     Active Substance: CIPROFLOXACIN
  8. NEXIUM [Concomitant]
     Active Substance: ESOMEPRAZOLE MAGNESIUM
  9. TOBRAMYCIN. [Concomitant]
     Active Substance: TOBRAMYCIN
  10. DIASTAT [Concomitant]
     Active Substance: DIAZEPAM
  11. CULTURELLE [Concomitant]
     Active Substance: LACTOBACILLUS RHAMNOSUS
  12. AMOX/K CLAV [Concomitant]
     Active Substance: AMOXICILLIN\CLAVULANATE POTASSIUM
  13. MUPIROCIN. [Concomitant]
     Active Substance: MUPIROCIN
  14. NYSTATIN. [Concomitant]
     Active Substance: NYSTATIN
  15. CLONIDINE. [Concomitant]
     Active Substance: CLONIDINE
  16. AMITRIPTYLINE [Concomitant]
     Active Substance: AMITRIPTYLINE
  17. CLINDAMYCIN. [Concomitant]
     Active Substance: CLINDAMYCIN
  18. CEFDINIR. [Concomitant]
     Active Substance: CEFDINIR
  19. PRED SOD PHO  SOL [Concomitant]
  20. AMOXICILLIN. [Concomitant]
     Active Substance: AMOXICILLIN
  21. VIGABATRIN. [Suspect]
     Active Substance: VIGABATRIN
     Indication: EPILEPSY
     Route: 048
     Dates: start: 20171228
  22. PHENOBARB [Concomitant]
     Active Substance: PHENOBARBITAL SODIUM

REACTIONS (1)
  - Respiratory failure [None]

NARRATIVE: CASE EVENT DATE: 20180815
